FAERS Safety Report 25494069 (Version 1)
Quarter: 2025Q2

REPORT INFORMATION
  Report Type: Spontaneous
  Country: US (occurrence: US)
  Receive Date: 20250630
  Receipt Date: 20250630
  Transmission Date: 20250716
  Serious: No
  Sender: BAUSCH AND LOMB
  Company Number: US-BAUSCHBL-2025BNL011338

PATIENT
  Sex: Female

DRUGS (1)
  1. BRIMONIDINE TARTRATE [Suspect]
     Active Substance: BRIMONIDINE TARTRATE
     Indication: Intraocular pressure decreased
     Route: 047

REACTIONS (3)
  - Ill-defined disorder [Unknown]
  - Vitreous floaters [Unknown]
  - Ocular hyperaemia [Unknown]
